FAERS Safety Report 8573653-4 (Version None)
Quarter: 2012Q3

REPORT INFORMATION
  Report Type: 
  Country: None (occurrence: None)
  Receive Date: 20120806
  Receipt Date: 20120727
  Transmission Date: 20120928
  Serious: Yes (Other)
  Sender: FDA-Public Use
  Company Number: JP-VERTEX PHARMACEUTICALS INC.-AE-2012-009263

PATIENT
  Age: 63 Year
  Sex: Male

DRUGS (8)
  1. RIBAVIRIN [Concomitant]
     Route: 048
     Dates: start: 20120501, end: 20120502
  2. RIBAVIRIN [Concomitant]
     Route: 048
     Dates: start: 20120506, end: 20120514
  3. TELAVIC (TELAPREVIR) [Suspect]
     Indication: HEPATITIS C
     Route: 048
     Dates: start: 20120423, end: 20120514
  4. PEGINTERFERON ALFA-2B [Concomitant]
     Indication: HEPATITIS C
     Route: 058
     Dates: start: 20120423, end: 20120507
  5. URSO 250 [Concomitant]
     Route: 048
     Dates: start: 20120521
  6. RIBAVIRIN [Concomitant]
     Indication: HEPATITIS C
     Route: 048
     Dates: start: 20120423, end: 20120430
  7. RIBAVIRIN [Concomitant]
     Route: 048
     Dates: start: 20120503, end: 20120505
  8. SELBEX [Concomitant]
     Route: 048
     Dates: start: 20120424, end: 20120425

REACTIONS (1)
  - NEUTROPHIL COUNT DECREASED [None]
